FAERS Safety Report 17129007 (Version 1)
Quarter: 2019Q4

REPORT INFORMATION
  Report Type: Spontaneous
  Country: US (occurrence: US)
  Receive Date: 20191209
  Receipt Date: 20191209
  Transmission Date: 20200122
  Serious: Yes (Other)
  Sender: FDA-Public Use
  Company Number: US-PFIZER INC-2019527084

PATIENT
  Age: 45 Year
  Sex: Female

DRUGS (4)
  1. IBUPROFEN. [Concomitant]
     Active Substance: IBUPROFEN
     Dosage: 800 MG-1000 MG DAILY (2-3 EVERY MORNING AND LUNCH)
  2. GABAPENTIN. [Suspect]
     Active Substance: GABAPENTIN
     Dosage: 300 MG, 1X/DAY
     Dates: start: 2019
  3. GABAPENTIN. [Suspect]
     Active Substance: GABAPENTIN
     Indication: FIBROMYALGIA
     Dosage: 100 MG, 1X/DAY
     Dates: start: 201906, end: 201907
  4. GABAPENTIN. [Suspect]
     Active Substance: GABAPENTIN
     Dosage: 300 MG, 1X/DAY (ONCE IN THE MORNING)
     Dates: start: 201907, end: 201908

REACTIONS (8)
  - Memory impairment [Unknown]
  - Aggression [Not Recovered/Not Resolved]
  - Off label use [Unknown]
  - Intentional product misuse [Unknown]
  - Suicidal ideation [Unknown]
  - Abnormal behaviour [Not Recovered/Not Resolved]
  - Drug ineffective for unapproved indication [Unknown]
  - Frustration tolerance decreased [Unknown]

NARRATIVE: CASE EVENT DATE: 2019
